FAERS Safety Report 6731840-1 (Version None)
Quarter: 2010Q2

REPORT INFORMATION
  Report Type: 
  Country: None (occurrence: None)
  Receive Date: 20100519
  Receipt Date: 20100514
  Transmission Date: 20101027
  Serious: Yes (Death, Hospitalization)
  Sender: FDA-Public Use
  Company Number: PHEH2010US01595

PATIENT
  Sex: Male
  Weight: 93 kg

DRUGS (15)
  1. AFINITOR [Suspect]
     Indication: RENAL CANCER
     Dosage: 10 MG, DAILY
     Route: 048
     Dates: start: 20091127, end: 20100106
  2. ZOMETA [Suspect]
     Indication: METASTASES TO BONE
     Dosage: 4 MG, UNK
     Dates: start: 20090702
  3. COLACE [Concomitant]
  4. FERATAB [Concomitant]
  5. VITAMIN D [Concomitant]
  6. OSCAL [Concomitant]
  7. TETRACYCLINE [Concomitant]
  8. HYDROCORTISONE [Concomitant]
  9. NYSTATIN [Concomitant]
  10. BENADRYL [Concomitant]
  11. COMPAZINE [Concomitant]
  12. TUSSIONEX [Concomitant]
  13. CAPOTEN [Concomitant]
     Indication: HYPERTENSION
     Dosage: 25 MG, TID
     Route: 048
     Dates: end: 20100109
  14. METFORMIN HYDROCHLORIDE [Concomitant]
     Indication: DIABETES MELLITUS
     Dosage: 100 MG, BID
  15. LIPITOR [Concomitant]
     Indication: BLOOD CHOLESTEROL INCREASED
     Dosage: 20 MG DAILY

REACTIONS (9)
  - ASTHENIA [None]
  - DEHYDRATION [None]
  - HYPOVOLAEMIA [None]
  - LUNG INFILTRATION [None]
  - MALIGNANT NEOPLASM PROGRESSION [None]
  - PARACENTESIS [None]
  - PLEURAL EFFUSION [None]
  - RENAL FAILURE [None]
  - RENAL TUBULAR NECROSIS [None]
